FAERS Safety Report 10368355 (Version 1)
Quarter: 2014Q3

REPORT INFORMATION
  Report Type: Spontaneous
  Country: US (occurrence: None)
  Receive Date: 20140805
  Receipt Date: 20140805
  Transmission Date: 20150326
  Serious: Yes (Disabling, Other)
  Sender: FDA-Public Use
  Company Number: 2473035

PATIENT
  Age: 77 Year
  Sex: Female

DRUGS (1)
  1. METHOTREXATE [Suspect]
     Active Substance: METHOTREXATE
     Indication: NON-HODGKIN^S LYMPHOMA
     Dosage: 300 MG MILLIGRAM(S), UNKNOWN, INTRATHEAL
     Route: 037

REACTIONS (9)
  - Hypertension [None]
  - Cardiopulmonary failure [None]
  - Vomiting [None]
  - Tachycardia [None]
  - Confusional state [None]
  - Nausea [None]
  - Memory impairment [None]
  - Accidental overdose [None]
  - Convulsion [None]
